FAERS Safety Report 6665308-8 (Version None)
Quarter: 2010Q1

REPORT INFORMATION
  Report Type: 
  Country: None (occurrence: None)
  Receive Date: 20100331
  Receipt Date: 20100317
  Transmission Date: 20100710
  Serious: Yes (Other)
  Sender: FDA-Public Use
  Company Number: RB-04901-2010

PATIENT
  Age: 82 Year
  Sex: Male

DRUGS (6)
  1. MUCINEX [Suspect]
     Dosage: 2 DF IN 24 HOURS, ORAL
     Route: 048
     Dates: start: 20100316
  2. LISINOPRIL [Concomitant]
  3. WARFARIN SODIUM [Concomitant]
  4. VICODIN [Concomitant]
  5. VITAMIN D [Concomitant]
  6. VITAMIN B-12 [Concomitant]

REACTIONS (1)
  - HEARING IMPAIRED [None]
